FAERS Safety Report 9274758 (Version 1)
Quarter: 2013Q2

REPORT INFORMATION
  Report Type: Spontaneous
  Country: US (occurrence: None)
  Receive Date: 20130430
  Receipt Date: 20130430
  Transmission Date: 20140414
  Serious: Yes (Life-Threatening)
  Sender: FDA-Public Use
  Company Number: None

PATIENT
  Age: 78 Year
  Sex: Female
  Weight: 72.58 kg

DRUGS (2)
  1. ZICAM [Suspect]
     Indication: NASOPHARYNGITIS
     Dosage: 1 RAPID MELT TAB Q3H X 4 DAYS
     Route: 048
  2. ZICAM [Suspect]
     Indication: VIRAL INFECTION
     Dosage: 1 RAPID MELT TAB Q3H X 4 DAYS
     Route: 048

REACTIONS (5)
  - Convulsion [None]
  - Dizziness [None]
  - Atrial fibrillation [None]
  - Nausea [None]
  - Decreased appetite [None]
